FAERS Safety Report 13216665 (Version 1)
Quarter: 2017Q1

REPORT INFORMATION
  Report Type: Report from Study
  Country: JP (occurrence: JP)
  Receive Date: 20170210
  Receipt Date: 20170210
  Transmission Date: 20170428
  Serious: Yes (Disabling, Other)
  Sender: FDA-Public Use
  Company Number: JP-BRISTOL-MYERS SQUIBB COMPANY-12197463

PATIENT
  Age: 23 Year
  Sex: Male
  Weight: 54 kg

DRUGS (21)
  1. ATAZANAVIR SULFATE [Suspect]
     Active Substance: ATAZANAVIR SULFATE
     Indication: HIV INFECTION
     Dosage: UNK
     Route: 048
     Dates: start: 20041008
  2. SAQUINAVIR [Suspect]
     Active Substance: SAQUINAVIR
     Indication: ACQUIRED IMMUNODEFICIENCY SYNDROME
     Dosage: 400 MG, BID
     Route: 048
     Dates: start: 19971111, end: 19980311
  3. RECOMBINATE [Concomitant]
     Active Substance: ANTIHEMOPHILIC FACTOR, HUMAN RECOMBINANT
     Indication: PRODUCT USED FOR UNKNOWN INDICATION
     Dosage: DOSAGE FORM = UNITS
     Route: 040
     Dates: start: 19971101, end: 20020331
  4. AMPRENAVIR [Concomitant]
     Active Substance: AMPRENAVIR
     Indication: PRODUCT USED FOR UNKNOWN INDICATION
     Dosage: UNK
     Route: 065
     Dates: start: 19990510, end: 19990817
  5. EPIVIR [Concomitant]
     Active Substance: LAMIVUDINE
     Indication: PRODUCT USED FOR UNKNOWN INDICATION
     Dosage: INTERRUPTED 11-NOV-1997, RESTARTED 11-MAR-1998
     Route: 048
     Dates: start: 19971101, end: 19981116
  6. DIDANOSINE. [Suspect]
     Active Substance: DIDANOSINE
     Indication: HIV INFECTION
     Route: 065
  7. DIDANOSINE. [Suspect]
     Active Substance: DIDANOSINE
     Indication: HIV INFECTION
     Dosage: 250 MG, QD
     Route: 065
     Dates: start: 20010421
  8. RETROVIR [Concomitant]
     Active Substance: ZIDOVUDINE
     Indication: PRODUCT USED FOR UNKNOWN INDICATION
     Dosage: 100 MG, TID
     Route: 048
     Dates: start: 19971101, end: 19971111
  9. DIDANOSINE. [Suspect]
     Active Substance: DIDANOSINE
     Indication: ACQUIRED IMMUNODEFICIENCY SYNDROME
     Dosage: 150 MG BID 10/30/95, 100 MG BID 12/25/95, 150 MG BID 3/11/98, 200 MG BID 7/12/99-4/20/01
     Route: 048
     Dates: start: 19951030
  10. ABACAVIR. [Suspect]
     Active Substance: ABACAVIR
     Indication: ACQUIRED IMMUNODEFICIENCY SYNDROME
     Dosage: 300 MG, BID
     Route: 048
     Dates: start: 19990329
  11. LOPINAVIR,RITONAVIR [Suspect]
     Active Substance: LOPINAVIR\RITONAVIR
     Indication: ACQUIRED IMMUNODEFICIENCY SYNDROME
     Dosage: 6 DF, UNK
     Route: 048
     Dates: start: 20020304
  12. HIVID [Concomitant]
     Active Substance: ZALCITABINE
     Indication: PRODUCT USED FOR UNKNOWN INDICATION
     Dosage: .75 MG, TID
     Route: 048
     Dates: start: 19981116, end: 19990329
  13. NELFINAVIR MESYLATE [Suspect]
     Active Substance: NELFINAVIR MESYLATE
     Indication: ACQUIRED IMMUNODEFICIENCY SYNDROME
     Dosage: INITIATED AT 500 MG THREE TIMES DAILY TO 11-NOV-1997, RESTARTED 17-AUG-1999
     Route: 048
     Dates: start: 19970804, end: 20020303
  14. LOPEMIN                            /00384302/ [Concomitant]
     Active Substance: LOPERAMIDE HYDROCHLORIDE
     Indication: PRODUCT USED FOR UNKNOWN INDICATION
     Dosage: THERAPY INTERRUPTED 10/31/99, RESTARTED 4/1/01
     Route: 048
     Dates: start: 19981101
  15. STAVUDINE. [Suspect]
     Active Substance: STAVUDINE
     Indication: HIV INFECTION
     Dosage: 22-OCT-2002 DECREASED TO 60 MG DAILY FROM 80 MG DAILY.
     Route: 048
     Dates: start: 19980114, end: 20040527
  16. RITONAVIR. [Suspect]
     Active Substance: RITONAVIR
     Indication: HIV INFECTION
     Dosage: 400 MG, BID
     Route: 048
     Dates: start: 20020304
  17. SOMATROPIN [Concomitant]
     Active Substance: SOMATROPIN
     Indication: WEIGHT DECREASED
     Dosage: 5 MG, QD
     Route: 042
     Dates: start: 20010423
  18. CELESTAMINE [Concomitant]
     Active Substance: BETAMETHASONE\DEXCHLORPHENIRAMINE MALEATE
     Indication: PRODUCT USED FOR UNKNOWN INDICATION
     Dosage: UNK
     Route: 048
     Dates: start: 20041025, end: 20041031
  19. PROZEI [Concomitant]
     Active Substance: AMPRENAVIR
     Indication: PRODUCT USED FOR UNKNOWN INDICATION
     Dosage: UNK
     Route: 048
     Dates: start: 19990510, end: 19990817
  20. LOXONIN [Concomitant]
     Active Substance: LOXOPROFEN SODIUM
     Indication: PRODUCT USED FOR UNKNOWN INDICATION
     Dosage: INTERRUPTED 11-JAN-2002, RESTARTED 01-APR-2002
     Route: 048
     Dates: start: 20011022
  21. EFAVIRENZ [Suspect]
     Active Substance: EFAVIRENZ
     Indication: ACQUIRED IMMUNODEFICIENCY SYNDROME
     Dosage: 600 MG, QD
     Route: 048
     Dates: start: 19990329, end: 20020303

REACTIONS (4)
  - Osteonecrosis [Recovered/Resolved with Sequelae]
  - Hyperlactacidaemia [Not Recovered/Not Resolved]
  - Platelet count decreased [Not Recovered/Not Resolved]
  - Cachexia [Not Recovered/Not Resolved]

NARRATIVE: CASE EVENT DATE: 19980223
